FAERS Safety Report 10233341 (Version 1)
Quarter: 2014Q2

REPORT INFORMATION
  Report Type: Spontaneous
  Country: US (occurrence: US)
  Receive Date: 20140612
  Receipt Date: 20140612
  Transmission Date: 20141212
  Serious: Yes (Hospitalization, Other)
  Sender: FDA-Public Use
  Company Number: US-PFIZER INC-2014157455

PATIENT
  Age: 68 Year
  Sex: Male
  Weight: 88.44 kg

DRUGS (3)
  1. REVATIO [Suspect]
     Indication: VENTRICULAR ASSIST DEVICE INSERTION
     Dosage: 20 MG, 3X/DAY
     Route: 048
     Dates: start: 20140119
  2. REVATIO [Suspect]
     Indication: CARDIOVASCULAR DISORDER
  3. WARFARIN [Concomitant]
     Dosage: UNK

REACTIONS (4)
  - Haemorrhage [Unknown]
  - Intra-abdominal haemorrhage [Unknown]
  - Epistaxis [Unknown]
  - Cardiac disorder [Unknown]
